FAERS Safety Report 21273113 (Version 1)
Quarter: 2022Q3

REPORT INFORMATION
  Report Type: Report from Study
  Country: BE (occurrence: BE)
  Receive Date: 20220831
  Receipt Date: 20220831
  Transmission Date: 20221026
  Serious: Yes (Other)
  Sender: FDA-Public Use
  Company Number: BE-SUN PHARMACEUTICAL INDUSTRIES LTD-2022R1-352764

PATIENT
  Age: 51 Year
  Sex: Male

DRUGS (1)
  1. METHOTREXATE [Suspect]
     Active Substance: METHOTREXATE
     Indication: Glottis carcinoma
     Dosage: 60 MILLIGRAM/SQ. METER, QW
     Route: 065

REACTIONS (2)
  - Therapy partial responder [Unknown]
  - Hepatotoxicity [Unknown]
